FAERS Safety Report 7916997-9 (Version None)
Quarter: 2011Q4

REPORT INFORMATION
  Report Type: 
  Country: None (occurrence: None)
  Receive Date: 20111116
  Receipt Date: 20111116
  Transmission Date: 20120403
  Serious: Yes (Other)
  Sender: FDA-Public Use
  Company Number: None

PATIENT
  Age: 4 Year
  Sex: Female
  Weight: 16.329 kg

DRUGS (2)
  1. MEIJER CHILDREN'S PAIN RELIEF [Suspect]
     Indication: PAIN IN EXTREMITY
     Dosage: 1.5 TSP -7.5 ML-
     Route: 048
     Dates: start: 20111115, end: 20111115
  2. ACETAMINOPHEN [Concomitant]

REACTIONS (2)
  - LIP SWELLING [None]
  - URTICARIA [None]
